FAERS Safety Report 8060006-0 (Version None)
Quarter: 2012Q1

REPORT INFORMATION
  Report Type: 
  Country: None (occurrence: None)
  Receive Date: 20120120
  Receipt Date: 20120110
  Transmission Date: 20120608
  Serious: Yes (Hospitalization)
  Sender: FDA-Public Use
  Company Number: US-US-EMD SERONO, INC.-7093435

PATIENT
  Sex: Male
  Weight: 113 kg

DRUGS (9)
  1. LISINOPRIL [Concomitant]
     Indication: HYPERTENSION
  2. REBIF [Suspect]
     Indication: MULTIPLE SCLEROSIS
     Route: 058
     Dates: start: 20110914, end: 20111010
  3. NOVOLOG [Concomitant]
     Indication: DIABETES MELLITUS
  4. MICARDIS [Concomitant]
     Indication: HYPERTENSION
  5. LITHIUM [Concomitant]
     Indication: BECKER'S MUSCULAR DYSTROPHY
  6. LYRICA [Concomitant]
     Indication: PAIN
  7. LANTUS [Concomitant]
     Indication: DIABETES MELLITUS
  8. REBIF [Suspect]
     Route: 058
     Dates: start: 20111031
  9. PROVENTIL GENTLEHALER [Concomitant]
     Indication: ASTHMA

REACTIONS (5)
  - ASPIRATION [None]
  - RESPIRATORY FAILURE [None]
  - PNEUMONIA [None]
  - INJECTION SITE MASS [None]
  - ARTHRALGIA [None]
